FAERS Safety Report 18648215 (Version 1)
Quarter: 2020Q4

REPORT INFORMATION
  Report Type: Spontaneous
  Country: GB (occurrence: GB)
  Receive Date: 20201222
  Receipt Date: 20201222
  Transmission Date: 20210114
  Serious: Yes (Hospitalization)
  Sender: FDA-Public Use
  Company Number: GB-TEVA-2020-GB-1859639

PATIENT
  Age: 60 Year
  Sex: Female
  Weight: 90 kg

DRUGS (10)
  1. PRIADEL [Interacting]
     Active Substance: LITHIUM
     Indication: DEPRESSION
     Dosage: ORIGINALLY ON 200MG TWICE DAILY, THEN INCREASED TO 400MG TWICE DAILY, THEN REDUCED AGAIN, UNIT DOSE:
     Route: 048
  2. DALTEPARIN [Concomitant]
     Active Substance: DALTEPARIN
  3. PREDNISOLONE. [Interacting]
     Active Substance: PREDNISOLONE
     Indication: RHEUMATOID ARTHRITIS
     Route: 065
     Dates: start: 202011
  4. AMLODIPINE [Concomitant]
     Active Substance: AMLODIPINE BESYLATE
     Indication: HYPERTENSION
  5. DIAZEPAM. [Concomitant]
     Active Substance: DIAZEPAM
  6. ALENDRONATE SODIUM. [Concomitant]
     Active Substance: ALENDRONATE SODIUM
  7. CLARITHROMYCIN. [Suspect]
     Active Substance: CLARITHROMYCIN
     Indication: ATYPICAL PNEUMONIA
     Dosage: PATIENT RECEIVED TWO DOSES
     Route: 065
     Dates: start: 202011
  8. FERROUS SULFATE. [Concomitant]
     Active Substance: FERROUS SULFATE
  9. SULPIRIDE [Concomitant]
     Active Substance: SULPIRIDE
  10. PARACETAMOL [Concomitant]
     Active Substance: ACETAMINOPHEN

REACTIONS (9)
  - Underdose [Unknown]
  - Pyrexia [Unknown]
  - Toxicity to various agents [Recovering/Resolving]
  - Hypermagnesaemia [Recovering/Resolving]
  - Acute kidney injury [Unknown]
  - Bradycardia [Recovering/Resolving]
  - Drug interaction [Unknown]
  - Lower respiratory tract infection [Unknown]
  - Dyspnoea [Unknown]

NARRATIVE: CASE EVENT DATE: 20201120
